FAERS Safety Report 5840177-4 (Version None)
Quarter: 2008Q3

REPORT INFORMATION
  Report Type: 
  Country: None (occurrence: None)
  Receive Date: 20080807
  Receipt Date: 20080807
  Transmission Date: 20090109
  Serious: Yes (Life-Threatening, Hospitalization, Other)
  Sender: FDA-Public Use
  Company Number: None

PATIENT
  Sex: Female
  Weight: 68.0396 kg

DRUGS (2)
  1. GLYBURIDE AND METFORMIN HCL [Suspect]
     Indication: DIABETES MELLITUS
     Dosage: 1 TABLET TWICE A DAY
     Dates: start: 20080618, end: 20080621
  2. GLYBURIDE AND METFORMIN HCL [Suspect]
     Indication: DIABETES MELLITUS
     Dosage: 1 TABLET TWICE A DAY
     Dates: start: 20080624, end: 20080630

REACTIONS (7)
  - ASTHENIA [None]
  - CHROMATOPSIA [None]
  - DYSPNOEA [None]
  - FATIGUE [None]
  - HAEMOLYTIC ANAEMIA [None]
  - MYALGIA [None]
  - NAUSEA [None]
